FAERS Safety Report 24198228 (Version 1)
Quarter: 2024Q3

REPORT INFORMATION
  Report Type: Spontaneous
  Country: US (occurrence: US)
  Receive Date: 20240812
  Receipt Date: 20240812
  Transmission Date: 20241016
  Serious: Yes (Hospitalization, Other)
  Sender: DR REDDYS
  Company Number: US-E2BLSMVVAL-SPO/USA/24/0011515

PATIENT
  Sex: Male

DRUGS (1)
  1. LURASIDONE HYDROCHLORIDE [Suspect]
     Active Substance: LURASIDONE HYDROCHLORIDE
     Indication: Bipolar disorder
     Route: 064

REACTIONS (9)
  - Dehydration [Recovered/Resolved]
  - Feeding disorder [Recovered/Resolved]
  - Cryptorchism [Recovered/Resolved]
  - Inguinal hernia [Recovered/Resolved]
  - Umbilical hernia [Recovered/Resolved]
  - Hypoglycaemia [Recovered/Resolved]
  - Hypernatraemia [Recovered/Resolved]
  - Foetal exposure during pregnancy [Unknown]
  - Failure to thrive [Recovered/Resolved]
